FAERS Safety Report 8156126-2 (Version None)
Quarter: 2012Q1

REPORT INFORMATION
  Report Type: 
  Country: None (occurrence: None)
  Receive Date: 20120221
  Receipt Date: 20120221
  Transmission Date: 20120608
  Serious: Yes (Death, Life-Threatening, Hospitalization)
  Sender: FDA-Public Use
  Company Number: None

PATIENT
  Sex: Female
  Weight: 133.8111 kg

DRUGS (10)
  1. BENADRYL [Concomitant]
  2. LISINOPRIL AND HYDROCHLOROTHIAZIDE [Suspect]
     Indication: HYPERTENSION
     Dosage: 20-25MG DAILY ORALLY
     Route: 048
     Dates: start: 20011114, end: 20111126
  3. CRESTOR [Concomitant]
  4. NITROGLYCERIN [Concomitant]
  5. METFORMIN HCL [Concomitant]
  6. CINNAMON [Concomitant]
  7. LISINOPRIL AND HYDROCHLOROTHIAZIDE [Suspect]
     Indication: HYPERTENSION
     Dosage: 10-12.5MG DAILY ORALLY 2-3 YEARS UNTIL DOSE CHANGE (11/13/2011)
     Route: 048
  8. FLUOXETINE HCL [Concomitant]
  9. PANTOPRAZOLE [Concomitant]
  10. ALPRAZOLEM [Concomitant]

REACTIONS (6)
  - SPEECH DISORDER [None]
  - FEELING ABNORMAL [None]
  - SWOLLEN TONGUE [None]
  - LOSS OF CONSCIOUSNESS [None]
  - DYSKINESIA [None]
  - OBSTRUCTIVE AIRWAYS DISORDER [None]
